FAERS Safety Report 8825062 (Version 1)
Quarter: 2012Q4

REPORT INFORMATION
  Report Type: 
  Country: US (occurrence: US)
  Receive Date: 20121004
  Receipt Date: 20121004
  Transmission Date: 20130627
  Serious: Yes (Other)
  Sender: FDA-Public Use
  Company Number: PHEH2012US016756

PATIENT
  Age: 43 Year
  Sex: Female
  Weight: 76.19 kg

DRUGS (4)
  1. GILENYA [Suspect]
     Indication: MULTIPLE SCLEROSIS
     Dosage: 0.5 mg, QD
     Route: 048
     Dates: start: 20120203, end: 20120427
  2. CRESTOR [Concomitant]
     Route: 048
  3. ZOLOFT [Concomitant]
     Route: 048
  4. BUPROPION HYDROCHLORIDE [Concomitant]
     Route: 048

REACTIONS (6)
  - Feeling hot [Recovered/Resolved]
  - Flushing [Recovered/Resolved]
  - Disorientation [Recovered/Resolved]
  - Depression [Recovered/Resolved]
  - Decreased immune responsiveness [Recovered/Resolved]
  - Sinusitis [Recovered/Resolved]
